FAERS Safety Report 16349964 (Version 1)
Quarter: 2019Q2

REPORT INFORMATION
  Report Type: Spontaneous
  Country: DE (occurrence: DE)
  Receive Date: 20190523
  Receipt Date: 20190523
  Transmission Date: 20190711
  Serious: Yes (Hospitalization)
  Sender: FDA-Public Use
  Company Number: PHHY2019DE069676

PATIENT
  Age: 31 Year
  Sex: Female

DRUGS (1)
  1. RITALIN LA [Suspect]
     Active Substance: METHYLPHENIDATE HYDROCHLORIDE
     Indication: ATTENTION DEFICIT/HYPERACTIVITY DISORDER
     Dosage: 40 MG, QD
     Route: 065
     Dates: start: 201903

REACTIONS (4)
  - Vaginal discharge [Recovered/Resolved]
  - Vaginal infection [Recovered/Resolved]
  - Vaginal odour [Recovered/Resolved]
  - Pruritus genital [Recovered/Resolved]
